FAERS Safety Report 13056622 (Version 1)
Quarter: 2016Q4

REPORT INFORMATION
  Report Type: Spontaneous
  Country: ES (occurrence: ES)
  Receive Date: 20161222
  Receipt Date: 20161222
  Transmission Date: 20170207
  Serious: Yes (Hospitalization, Other)
  Sender: FDA-Public Use
  Company Number: ES-ELI_LILLY_AND_COMPANY-ES201612005020

PATIENT
  Age: 94 Year
  Sex: Male

DRUGS (13)
  1. PARACETAMOL [Concomitant]
     Active Substance: ACETAMINOPHEN
     Indication: PRODUCT USED FOR UNKNOWN INDICATION
     Dosage: UNK, PRN
     Route: 065
  2. ADIRO [Concomitant]
     Active Substance: ASPIRIN
     Indication: PRODUCT USED FOR UNKNOWN INDICATION
     Dosage: 100 MG, PRN
     Route: 065
  3. ATORVASTATINA [Concomitant]
     Active Substance: ATORVASTATIN
     Indication: PRODUCT USED FOR UNKNOWN INDICATION
     Dosage: 20 MG, EACH EVENING
     Route: 065
  4. HIDROFEROL [Concomitant]
     Active Substance: CALCIFEDIOL
     Indication: PRODUCT USED FOR UNKNOWN INDICATION
     Dosage: UNK UNK, QD
     Route: 048
  5. LOSARTAN + HIDROCLOROTIAZIDA       /01625701/ [Concomitant]
     Indication: PRODUCT USED FOR UNKNOWN INDICATION
     Dosage: 1 DF, EACH MORNING
     Route: 065
  6. HUMULINA NPH [Suspect]
     Active Substance: INSULIN HUMAN
     Dosage: 8 U, AT DINNER
     Route: 058
     Dates: start: 20160708
  7. FUROSEMIDE. [Concomitant]
     Active Substance: FUROSEMIDE
     Indication: PRODUCT USED FOR UNKNOWN INDICATION
     Dosage: 40 MG, EACH MORNING
  8. AMLODIPINE [Concomitant]
     Active Substance: AMLODIPINE BESYLATE
     Indication: PRODUCT USED FOR UNKNOWN INDICATION
     Dosage: 5 MG, EACH MORNING
     Route: 065
  9. HUMULINA NPH [Suspect]
     Active Substance: INSULIN HUMAN
     Indication: DIABETES MELLITUS
     Dosage: 34 U, EACH MORNING
     Route: 058
     Dates: start: 2015
  10. FERROUS SULFATE. [Concomitant]
     Active Substance: FERROUS SULFATE
     Indication: PRODUCT USED FOR UNKNOWN INDICATION
     Dosage: UNK UNK, BID
     Route: 065
  11. AMLODIPINE [Concomitant]
     Active Substance: AMLODIPINE BESYLATE
     Dosage: 5 MG, EACH EVENING
     Route: 065
  12. HUMULINA NPH [Suspect]
     Active Substance: INSULIN HUMAN
     Dosage: 12 U, AT DINNER
     Route: 058
     Dates: start: 2015
  13. OMEPRAZOLE. [Concomitant]
     Active Substance: OMEPRAZOLE
     Indication: PRODUCT USED FOR UNKNOWN INDICATION
     Dosage: 20 MG, EACH EVENING
     Route: 065

REACTIONS (11)
  - Dysuria [Unknown]
  - Anaemia [Recovering/Resolving]
  - Disorientation [Recovered/Resolved]
  - Hypoglycaemia [Recovered/Resolved]
  - Blood glucose fluctuation [Unknown]
  - Haematuria [Unknown]
  - Diabetic retinopathy [Unknown]
  - Dyskinesia [Recovered/Resolved]
  - Goitre [Unknown]
  - Chronic kidney disease [Unknown]
  - Urinary tract infection [Recovering/Resolving]

NARRATIVE: CASE EVENT DATE: 201606
